FAERS Safety Report 23150794 (Version 1)
Quarter: 2023Q4

REPORT INFORMATION
  Report Type: Spontaneous
  Country: ES (occurrence: ES)
  Receive Date: 20231106
  Receipt Date: 20231106
  Transmission Date: 20240110
  Serious: Yes (Life-Threatening, Other)
  Sender: FDA-Public Use
  Company Number: ES-AMGEN-ESPSP2023162980

PATIENT
  Age: 34 Year
  Sex: Male

DRUGS (35)
  1. PEGFILGRASTIM [Suspect]
     Active Substance: PEGFILGRASTIM
     Indication: Prophylaxis
     Dosage: UNK, CYCLICAL
     Route: 065
  2. PEGFILGRASTIM [Suspect]
     Active Substance: PEGFILGRASTIM
     Indication: Desmoplastic small round cell tumour
     Dosage: CONTINUE WITH 4-WEEK INTERVALS
     Route: 065
  3. FILGRASTIM [Suspect]
     Active Substance: FILGRASTIM
     Indication: Prophylaxis
     Dosage: RECOMBINANT HUMAN
     Route: 065
  4. FILGRASTIM [Suspect]
     Active Substance: FILGRASTIM
     Dosage: UNK, CYCLICAL
     Route: 065
     Dates: start: 201808
  5. GRANULOCYTE COLONY-STIMULATING FACTOR NOS [Suspect]
     Active Substance: GRANULOCYTE COLONY-STIMULATING FACTOR NOS
     Indication: Product used for unknown indication
     Dosage: RECOMBINANT HUMAN
     Route: 065
  6. GRANULOCYTE COLONY-STIMULATING FACTOR NOS [Suspect]
     Active Substance: GRANULOCYTE COLONY-STIMULATING FACTOR NOS
     Dosage: INCREASED FOR 7 DAYS
     Route: 065
  7. IRINOTECAN [Concomitant]
     Active Substance: IRINOTECAN
     Indication: Desmoplastic small round cell tumour
     Dosage: 20 MILLIGRAM/SQ. METER,Q3W (D1-5, SECOND LINE)
     Route: 065
     Dates: start: 201904
  8. CYCLOPHOSPHAMIDE [Concomitant]
     Active Substance: CYCLOPHOSPHAMIDE
     Indication: Desmoplastic small round cell tumour
     Dosage: FIVE CYCLES (VDC)
     Route: 065
     Dates: start: 2018
  9. CYCLOPHOSPHAMIDE [Concomitant]
     Active Substance: CYCLOPHOSPHAMIDE
     Dosage: 2100MG/M2,D1-2,Q3W (VDC 1ST-LINE TREATMENT)
     Route: 065
     Dates: start: 20180808
  10. CYCLOPHOSPHAMIDE [Concomitant]
     Active Substance: CYCLOPHOSPHAMIDE
     Dosage: 250 MILLIGRAM/SQ. METER, Q3W (DAYS 1-5)
     Route: 065
     Dates: start: 202103
  11. CYCLOPHOSPHAMIDE [Concomitant]
     Active Substance: CYCLOPHOSPHAMIDE
     Dosage: 25 MILLIGRAM/SQ.METER, Q28D(D1-28, SEVENTH LINE)
     Route: 048
     Dates: start: 20211228, end: 20220313
  12. CYCLOPHOSPHAMIDE [Concomitant]
     Active Substance: CYCLOPHOSPHAMIDE
     Dosage: 2100 MILLIGRAM/SQ. METER, Q3W
     Route: 048
     Dates: start: 20230808
  13. TRABECTEDIN [Concomitant]
     Active Substance: TRABECTEDIN
     Indication: Desmoplastic small round cell tumour
     Dosage: 1.2 MILLIGRAM/SQ. METER, CYCLICAL
     Route: 065
     Dates: start: 201907
  14. TRABECTEDIN [Concomitant]
     Active Substance: TRABECTEDIN
     Dosage: 1.5 MILLIGRAM/SQ. METER, NINE CYCLES (THIRD LINE)
     Route: 065
     Dates: start: 201907
  15. TRABECTEDIN [Concomitant]
     Active Substance: TRABECTEDIN
     Dosage: MILLIGRAM/SQ. METER, CYCLICAL
     Route: 065
     Dates: start: 201909, end: 202009
  16. TRABECTEDIN [Concomitant]
     Active Substance: TRABECTEDIN
     Dosage: NINE CYCLES OF TRABECTEDIN UNTIL MAR-2020
     Route: 065
  17. TRABECTEDIN [Concomitant]
     Active Substance: TRABECTEDIN
     Dosage: CONTINUE WITH 4-WEEK INTERVALS
     Route: 065
  18. TRABECTEDIN [Concomitant]
     Active Substance: TRABECTEDIN
     Dosage: FOR SECOND CYCLE DECREASED ONE LEVEL TO 1.2 MG/M2
     Route: 065
  19. TRABECTEDIN [Concomitant]
     Active Substance: TRABECTEDIN
     Dosage: DOSE REDUCED BY ANOTHER LEVEL TO 1 MG/M2
     Route: 065
  20. TRABECTEDIN [Concomitant]
     Active Substance: TRABECTEDIN
     Dosage: 1 MILLIGRAM/SQ. METER
     Route: 065
  21. DOXORUBICIN [Concomitant]
     Active Substance: DOXORUBICIN
     Indication: Desmoplastic small round cell tumour
     Dosage: FIVE CYCLES (VDC)
     Route: 065
     Dates: start: 2018
  22. DOXORUBICIN [Concomitant]
     Active Substance: DOXORUBICIN
     Dosage: 25MG/M2,D1-3(VDC,1ST-LINETREATMENT),P6PROTOCOL
     Route: 065
     Dates: start: 20180808
  23. IFOSFAMIDE [Concomitant]
     Active Substance: IFOSFAMIDE
     Indication: Desmoplastic small round cell tumour
     Dosage: P6 PROTOCOL (SEVEN CYCLES)
     Route: 065
     Dates: start: 201808
  24. IFOSFAMIDE [Concomitant]
     Active Substance: IFOSFAMIDE
     Dosage: 100 MILLIGRAM/SQ. METER, Q3W
     Route: 065
     Dates: start: 201902
  25. IFOSFAMIDE [Concomitant]
     Active Substance: IFOSFAMIDE
     Dosage: UNK,(HIGH DOSE)
     Route: 065
     Dates: start: 2022
  26. TEMOZOLOMIDE [Concomitant]
     Active Substance: TEMOZOLOMIDE
     Indication: Desmoplastic small round cell tumour
     Dosage: 100 MG/SQ. METER,Q3W (D1-5,SECOND LINE)
     Route: 048
     Dates: start: 201904
  27. ETOPOSIDE [Concomitant]
     Active Substance: ETOPOSIDE
     Indication: Desmoplastic small round cell tumour
     Dosage: P6 PROTOCOL (SEVEN CYCLES)
     Route: 065
     Dates: start: 201808
  28. ETOPOSIDE [Concomitant]
     Active Substance: ETOPOSIDE
     Dosage: 1.8 MG/SQ. METER, Q3W (D1-5)
     Route: 065
     Dates: start: 201902
  29. TOPOTECAN [Concomitant]
     Active Substance: TOPOTECAN HYDROCHLORIDE
     Indication: Desmoplastic small round cell tumour
     Dosage: 0.75 MG/SQ. METER, Q3W (D1-5)
     Route: 065
     Dates: start: 202103
  30. VINCRISTINE [Concomitant]
     Active Substance: VINCRISTINE
     Indication: Desmoplastic small round cell tumour
     Dosage: FIVE CYCLES
     Route: 065
     Dates: start: 2018
  31. VINCRISTINE [Concomitant]
     Active Substance: VINCRISTINE
     Dosage: 0.67MG/M2,D1-3(VDC 1 LINE TREATMENT),P6 PROTOCOL
     Route: 065
     Dates: start: 20180808
  32. GEMCITABINE [Concomitant]
     Active Substance: GEMCITABINE
     Indication: Desmoplastic small round cell tumour
     Dosage: 900 MG/SQ.METER,Q3W (DAYS 1 AND 8, SIXTH LINE)
     Route: 065
     Dates: start: 202107, end: 202112
  33. VINORELBINE [Concomitant]
     Active Substance: VINORELBINE TARTRATE
     Indication: Desmoplastic small round cell tumour
     Dosage: 25 MG/SQ. METER,Q28D,(DAYS 1,8,CYCLICAL)
     Route: 065
     Dates: start: 20211228, end: 20220313
  34. PAZOPANIB [Concomitant]
     Active Substance: PAZOPANIB
     Indication: Desmoplastic small round cell tumour
     Dosage: 800 MILLIGRAM, QD
     Route: 065
     Dates: start: 202010
  35. DOCETAXEL [Concomitant]
     Active Substance: DOCETAXEL\DOCETAXEL ANHYDROUS
     Indication: Desmoplastic small round cell tumour
     Dosage: 75 MG/SQ. METER, Q3W (DAY 8 AND 21)
     Route: 065
     Dates: start: 202107, end: 202112

REACTIONS (11)
  - Haematotoxicity [Unknown]
  - Disease recurrence [Unknown]
  - Febrile neutropenia [Unknown]
  - Desmoplastic small round cell tumour [Unknown]
  - Biliary sepsis [Unknown]
  - Neutropenia [Unknown]
  - Neoplasm progression [Unknown]
  - Thrombocytopenia [Unknown]
  - Drug ineffective [Unknown]
  - Off label use [Unknown]
  - Product use in unapproved indication [Unknown]

NARRATIVE: CASE EVENT DATE: 20180101
